FAERS Safety Report 11947139 (Version 2)
Quarter: 2016Q1

REPORT INFORMATION
  Report Type: Spontaneous
  Country: US (occurrence: US)
  Receive Date: 20160125
  Receipt Date: 20160218
  Transmission Date: 20160526
  Serious: No
  Sender: FDA-Public Use
  Company Number: US-JNJFOC-20150510780

PATIENT
  Age: 20 Year
  Sex: Female
  Weight: 68.04 kg

DRUGS (3)
  1. LEVOXIN [Concomitant]
     Indication: HYPOTHYROIDISM
     Route: 065
  2. WOMENS ROGAINE UNSCENTED [Suspect]
     Active Substance: MINOXIDIL
     Route: 061
  3. WOMENS ROGAINE UNSCENTED [Suspect]
     Active Substance: MINOXIDIL
     Indication: ALOPECIA
     Dosage: HALF A CUP ONCE DAILY
     Route: 061

REACTIONS (1)
  - Alopecia [Recovered/Resolved]
